FAERS Safety Report 5833748-2 (Version None)
Quarter: 2008Q3

REPORT INFORMATION
  Report Type: 
  Country: None (occurrence: None)
  Receive Date: 20080804
  Receipt Date: 20080804
  Transmission Date: 20090109
  Serious: Yes (Hospitalization)
  Sender: FDA-Public Use
  Company Number: None

PATIENT
  Age: 61 Year
  Sex: Male
  Weight: 99 kg

DRUGS (2)
  1. FOSINOPRIL SODIUM [Suspect]
     Dosage: 10 MG EVERY DAY PO
     Route: 048
     Dates: start: 20080527, end: 20080602
  2. SPIRONOLACTONE [Suspect]
     Dosage: 200 MG EVERY DAY PO
     Route: 048
     Dates: start: 20060501, end: 20080602

REACTIONS (4)
  - BLOOD CREATININE INCREASED [None]
  - BLOOD UREA INCREASED [None]
  - CONFUSIONAL STATE [None]
  - HYPERKALAEMIA [None]
